FAERS Safety Report 12234362 (Version 1)
Quarter: 2016Q2

REPORT INFORMATION
  Report Type: Spontaneous
  Country: US (occurrence: None)
  Receive Date: 20160401
  Receipt Date: 20160401
  Transmission Date: 20160815
  Serious: No
  Sender: FDA-Public Use
  Company Number: None

PATIENT
  Age: 58 Year
  Sex: Male

DRUGS (1)
  1. TACROLIMUS CAPSULE 1 MG ACCORD [Suspect]
     Active Substance: TACROLIMUS
     Indication: RHEUMATOID ARTHRITIS
     Dosage: 1 MG EVERY 12 HOURS BY MOUTH
     Route: 048
     Dates: start: 20160114

REACTIONS (2)
  - Pruritus [None]
  - Amnesia [None]

NARRATIVE: CASE EVENT DATE: 20160115
